FAERS Safety Report 12306226 (Version 4)
Quarter: 2016Q2

REPORT INFORMATION
  Report Type: Spontaneous
  Country: US (occurrence: US)
  Receive Date: 20160426
  Receipt Date: 20160526
  Transmission Date: 20160815
  Serious: Yes (Hospitalization, Other)
  Sender: FDA-Public Use
  Company Number: PHHY2016US054543

PATIENT
  Age: 77 Year
  Sex: Female

DRUGS (6)
  1. GABAPENTIN. [Suspect]
     Active Substance: GABAPENTIN
     Indication: NEURALGIA
     Route: 065
  2. VOLTAREN [Suspect]
     Active Substance: DICLOFENAC SODIUM
     Indication: MUSCULOSKELETAL PAIN
  3. TEGRETOL [Suspect]
     Active Substance: CARBAMAZEPINE
     Indication: PRODUCT USED FOR UNKNOWN INDICATION
     Route: 065
  4. VOLTAREN [Suspect]
     Active Substance: DICLOFENAC SODIUM
     Indication: BACK PAIN
  5. VOLTAREN [Suspect]
     Active Substance: DICLOFENAC SODIUM
     Indication: ARTHRALGIA
     Dosage: 4 G, UNK
     Route: 065
     Dates: start: 2012
  6. VOLTAREN [Suspect]
     Active Substance: DICLOFENAC SODIUM
     Indication: NECK PAIN
     Dosage: 4 G, BID
     Route: 065
     Dates: start: 201603

REACTIONS (11)
  - Hospitalisation [Recovered/Resolved]
  - Application site pain [Recovered/Resolved]
  - Circumstance or information capable of leading to medication error [Unknown]
  - Expired product administered [Unknown]
  - Pain in extremity [Unknown]
  - Neck pain [Unknown]
  - Product quality issue [Unknown]
  - Product use issue [Unknown]
  - Dysstasia [Recovered/Resolved]
  - Urticaria [Unknown]
  - Feeling abnormal [Recovered/Resolved]
